FAERS Safety Report 8885092 (Version 1)
Quarter: 2012Q4

REPORT INFORMATION
  Report Type: Report from Study
  Country: GR (occurrence: GR)
  Receive Date: 20121102
  Receipt Date: 20121102
  Transmission Date: 20130627
  Serious: Yes (Death)
  Sender: FDA-Public Use
  Company Number: GR-ABBOTT-12P-066-1002557-00

PATIENT
  Sex: Male
  Weight: 67.5 kg

DRUGS (3)
  1. ZEMPLAR [Suspect]
     Indication: RENAL FAILURE CHRONIC
     Route: 042
     Dates: start: 20111024, end: 20120617
  2. MEDROL [Concomitant]
     Indication: SARCOIDOSIS
     Dosage: 16 mg every other day
     Route: 048
     Dates: end: 20120617
  3. NOVOMIX [Concomitant]
     Indication: DIABETES MELLITUS
     Dosage: 6-4-8 IU daily
     Route: 042
     Dates: end: 20120617

REACTIONS (1)
  - Cardiac arrest [Fatal]
